FAERS Safety Report 8482344-X (Version None)
Quarter: 2012Q3

REPORT INFORMATION
  Report Type: 
  Country: None (occurrence: None)
  Receive Date: 20120702
  Receipt Date: 20120621
  Transmission Date: 20120928
  Serious: Yes (Other)
  Sender: FDA-Public Use
  Company Number: US-BAYER-2012-062492

PATIENT

DRUGS (7)
  1. ALPRAZOLAM [Concomitant]
     Dosage: 3 DF, UNK
  2. AZULFIDINE [Concomitant]
     Dosage: 1 DF, BID
  3. ASPIRIN [Suspect]
  4. ALUPENT [Concomitant]
     Dosage: 2 DF, QID
     Route: 055
  5. DEMEROL [Concomitant]
     Dosage: 1 DF, Q6WK
  6. ATROVENT [Concomitant]
     Dosage: 1 DF, BID
     Route: 055
  7. ESTRADIOL [Concomitant]
     Dosage: 1 DF, ONCE

REACTIONS (4)
  - DRUG HYPERSENSITIVITY [None]
  - SWELLING FACE [None]
  - DYSPNOEA [None]
  - PHARYNGEAL OEDEMA [None]
